FAERS Safety Report 17791263 (Version 1)
Quarter: 2020Q2

REPORT INFORMATION
  Report Type: Spontaneous
  Country: US (occurrence: US)
  Receive Date: 20200515
  Receipt Date: 20200515
  Transmission Date: 20200714
  Serious: Yes (Other)
  Sender: FDA-Public Use
  Company Number: None

PATIENT
  Age: 72 Year
  Sex: Female
  Weight: 103.5 kg

DRUGS (14)
  1. ANORO ELLIPTA [Suspect]
     Active Substance: UMECLIDINIUM BROMIDE\VILANTEROL TRIFENATATE
     Indication: CHRONIC OBSTRUCTIVE PULMONARY DISEASE
     Dosage: ?          OTHER STRENGTH:MCG;QUANTITY:1 INHALATION(S);?
     Route: 055
  2. ALBUTEROL INHALER [Concomitant]
     Active Substance: ALBUTEROL
  3. CARVEDILOL. [Concomitant]
     Active Substance: CARVEDILOL
  4. FUROSEMIDE. [Concomitant]
     Active Substance: FUROSEMIDE
  5. VICODIN [Concomitant]
     Active Substance: ACETAMINOPHEN\HYDROCODONE BITARTRATE
  6. TYLENOL [Concomitant]
     Active Substance: ACETAMINOPHEN
  7. VEGETABLE LAXATIVE (SENNOSIDES) [Concomitant]
  8. ROPINIROLE. [Concomitant]
     Active Substance: ROPINIROLE
  9. MVI [Concomitant]
     Active Substance: VITAMINS
  10. VALERIAN [Concomitant]
     Active Substance: VALERIAN
  11. IBUPROFEN. [Concomitant]
     Active Substance: IBUPROFEN
  12. ENTRESTO [Concomitant]
     Active Substance: SACUBITRIL\VALSARTAN
  13. GLUCOSAME/CONDROITAN [Concomitant]
  14. METHADONE [Concomitant]
     Active Substance: METHADONE HYDROCHLORIDE

REACTIONS (3)
  - Oedema [None]
  - Rash [None]
  - Dysuria [None]

NARRATIVE: CASE EVENT DATE: 20200401
